FAERS Safety Report 13276126 (Version 1)
Quarter: 2017Q1

REPORT INFORMATION
  Report Type: Spontaneous
  Country: US (occurrence: US)
  Receive Date: 20170227
  Receipt Date: 20170227
  Transmission Date: 20170428
  Serious: Yes (Life-Threatening, Hospitalization)
  Sender: FDA-Public Use
  Company Number: None

PATIENT
  Age: 35 Year
  Sex: Female
  Weight: 90 kg

DRUGS (3)
  1. RABEPRAZOLE [Concomitant]
     Active Substance: RABEPRAZOLE
  2. BRIDION [Suspect]
     Active Substance: SUGAMMADEX
     Indication: PRODUCT USED FOR UNKNOWN INDICATION
     Route: 042
     Dates: start: 20170209, end: 20170209
  3. HYDROCODONE [Concomitant]
     Active Substance: HYDROCODONE

REACTIONS (5)
  - Bradycardia [None]
  - Cardiac arrest [None]
  - Sepsis [None]
  - Pulseless electrical activity [None]
  - Pneumonia [None]

NARRATIVE: CASE EVENT DATE: 20170209
